FAERS Safety Report 5682257-2 (Version None)
Quarter: 2008Q1

REPORT INFORMATION
  Report Type: 
  Country: None (occurrence: None)
  Receive Date: 20080326
  Receipt Date: 20080326
  Transmission Date: 20080703
  Serious: No
  Sender: FDA-Public Use
  Company Number: None

PATIENT
  Age: 50 Year
  Sex: Female
  Weight: 71.2147 kg

DRUGS (2)
  1. METHYLPREDNISOLONE 1 GM [Suspect]
     Indication: MULTIPLE SCLEROSIS
     Dosage: 1 GM DAILY IV
     Route: 042
     Dates: start: 20080309
  2. SODIUM CHLORIDE 0.9% [Suspect]
     Dosage: 250ML DAILY IV
     Route: 042

REACTIONS (3)
  - BLOOD PRESSURE INCREASED [None]
  - HEART RATE INCREASED [None]
  - PHARYNGEAL OEDEMA [None]
